FAERS Safety Report 23975766 (Version 1)
Quarter: 2024Q2

REPORT INFORMATION
  Report Type: Spontaneous
  Country: DE (occurrence: DE)
  Receive Date: 20240614
  Receipt Date: 20240614
  Transmission Date: 20240716
  Serious: Yes (Hospitalization)
  Sender: FDA-Public Use
  Company Number: DE-MYLANLABS-2024M1053665

PATIENT
  Age: 17 Year
  Sex: Female

DRUGS (6)
  1. LAMOTRIGINE [Suspect]
     Active Substance: LAMOTRIGINE
     Indication: Epilepsy
     Dosage: 175 MILLIGRAM, QD
     Route: 065
  2. LAMOTRIGINE [Suspect]
     Active Substance: LAMOTRIGINE
     Indication: Generalised tonic-clonic seizure
     Dosage: 200 MILLIGRAM, QD
     Route: 065
  3. LAMOTRIGINE [Suspect]
     Active Substance: LAMOTRIGINE
     Indication: Partial seizures
  4. CLOBAZAM [Concomitant]
     Active Substance: CLOBAZAM
     Indication: Epilepsy
     Dosage: UNK
     Route: 065
  5. CLOBAZAM [Concomitant]
     Active Substance: CLOBAZAM
     Indication: Partial seizures
  6. CLOBAZAM [Concomitant]
     Active Substance: CLOBAZAM
     Indication: Partial seizures

REACTIONS (9)
  - Acute kidney injury [Recovering/Resolving]
  - Drug reaction with eosinophilia and systemic symptoms [Recovering/Resolving]
  - Tubulointerstitial nephritis [Recovering/Resolving]
  - Renal tubular necrosis [Recovering/Resolving]
  - Intentional product misuse [Recovering/Resolving]
  - Intentional overdose [Recovering/Resolving]
  - Treatment noncompliance [Recovering/Resolving]
  - Pericardial effusion [Recovering/Resolving]
  - Oedema [Recovering/Resolving]
